FAERS Safety Report 5977052-0 (Version None)
Quarter: 2008Q4

REPORT INFORMATION
  Report Type: 
  Country: None (occurrence: None)
  Receive Date: 20081202
  Receipt Date: 20081202
  Transmission Date: 20090506
  Serious: Yes (Other)
  Sender: FDA-Public Use
  Company Number: None

PATIENT
  Age: 26 Year
  Sex: Female

DRUGS (2)
  1. YASMIN [Suspect]
     Indication: ORAL CONTRACEPTION
  2. TRIPHASIL-21 [Suspect]
     Indication: HORMONE REPLACEMENT THERAPY
     Dosage: 15

REACTIONS (2)
  - BLOOD COPPER INCREASED [None]
  - CORNEAL DEPOSITS [None]
